FAERS Safety Report 8494790-9 (Version None)
Quarter: 2012Q2

REPORT INFORMATION
  Report Type: 
  Country: None (occurrence: None)
  Receive Date: 20120628
  Receipt Date: 20120610
  Transmission Date: 20120825
  Serious: Yes (Other)
  Sender: FDA-Public Use
  Company Number: 549731 AE#910

PATIENT
  Age: 8 Month

DRUGS (2)
  1. HYLAND'S BABY TEETHIG TABLETS [Suspect]
     Indication: TEETHING
     Dosage: RECOMMENDED DOSE X 2 DYS
  2. ACETAMINOPHEN [Suspect]

REACTIONS (6)
  - MYDRIASIS [None]
  - VIRAL INFECTION [None]
  - PYREXIA [None]
  - RASH [None]
  - URINE OUTPUT DECREASED [None]
  - VOMITING [None]
